FAERS Safety Report 23434003 (Version 1)
Quarter: 2024Q1

REPORT INFORMATION
  Report Type: Spontaneous
  Country: IT (occurrence: IT)
  Receive Date: 20240123
  Receipt Date: 20240123
  Transmission Date: 20240409
  Serious: Yes (Other)
  Sender: FDA-Public Use
  Company Number: IT-CHEPLA-2024000170

PATIENT
  Age: 70 Year
  Sex: Female

DRUGS (2)
  1. GANCICLOVIR [Suspect]
     Active Substance: GANCICLOVIR
     Indication: Cytomegalovirus gastroenteritis
     Dosage: 5 MILLIGRAM/KILOGRAM, BID (TWICE DAILY FOR 7 D)
     Route: 042
  2. VALGANCICLOVIR [Suspect]
     Active Substance: VALGANCICLOVIR
     Indication: Cytomegalovirus gastroenteritis
     Dosage: 450 MILLIGRAM, BID (STARTED FOR 2 CYCLES OF 3 WEEKS EACH)
     Route: 048

REACTIONS (3)
  - Pancytopenia [Unknown]
  - Intentional product use issue [Unknown]
  - Off label use [Unknown]
